FAERS Safety Report 7774631-5 (Version None)
Quarter: 2011Q3

REPORT INFORMATION
  Report Type: 
  Country: None (occurrence: None)
  Receive Date: 20110923
  Receipt Date: 20110916
  Transmission Date: 20111222
  Serious: Yes (Hospitalization)
  Sender: FDA-Public Use
  Company Number: GB-ROCHE-803183

PATIENT
  Age: 18 Year
  Sex: Female

DRUGS (3)
  1. TACROLIMUS [Concomitant]
  2. CYCLOSPORINE [Suspect]
     Indication: LIVER TRANSPLANT
     Route: 065
  3. MYCOPHENOLATE MOFETIL [Suspect]
     Route: 065

REACTIONS (3)
  - LIVER FUNCTION TEST ABNORMAL [None]
  - LIVER TRANSPLANT REJECTION [None]
  - ANTIBODY TEST POSITIVE [None]
